FAERS Safety Report 25352643 (Version 7)
Quarter: 2025Q4

REPORT INFORMATION
  Report Type: Spontaneous
  Country: US (occurrence: US)
  Receive Date: 20250523
  Receipt Date: 20251001
  Transmission Date: 20260117
  Serious: Yes (Other)
  Sender: CALLIDITAS THERAPEUTICS AB
  Company Number: US-Calliditas-2025CAL01310

PATIENT
  Age: 83 Year
  Sex: Male

DRUGS (11)
  1. TARPEYO [Suspect]
     Active Substance: BUDESONIDE
     Indication: IgA nephropathy
     Route: 048
     Dates: start: 20250218, end: 20250508
  2. IPRATROPIUM [Concomitant]
     Active Substance: IPRATROPIUM
  3. ALBUTEROL [Concomitant]
     Active Substance: ALBUTEROL
  4. ALBUTEROL SULFATE [Concomitant]
     Active Substance: ALBUTEROL SULFATE
  5. ALFUZOSIN [Concomitant]
     Active Substance: ALFUZOSIN
  6. ALLOPURINOL [Concomitant]
     Active Substance: ALLOPURINOL
  7. ATORVASTATIN [Concomitant]
     Active Substance: ATORVASTATIN
  8. ELIQUIS [Concomitant]
     Active Substance: APIXABAN
  9. IRBESARTAN [Concomitant]
     Active Substance: IRBESARTAN
  10. METOPROLOL SUCCINATE [Concomitant]
     Active Substance: METOPROLOL SUCCINATE
  11. ZETIA [Concomitant]
     Active Substance: EZETIMIBE

REACTIONS (5)
  - Joint swelling [Recovered/Resolved]
  - Therapy interrupted [Recovered/Resolved]
  - Cerebrovascular accident [Recovering/Resolving]
  - Skin cancer [Recovered/Resolved]
  - Skin graft [Recovered/Resolved]

NARRATIVE: CASE EVENT DATE: 20250507
